FAERS Safety Report 9069449 (Version 1)
Quarter: 2013Q1

REPORT INFORMATION
  Report Type: Report from Study
  Country: US (occurrence: US)
  Receive Date: 20130131
  Receipt Date: 20130131
  Transmission Date: 20140127
  Serious: No
  Sender: FDA-Public Use
  Company Number: US-ABBOTT-12P-163-0979314-00

PATIENT
  Age: 51 Year
  Sex: Female

DRUGS (9)
  1. HUMIRA [Suspect]
     Indication: CROHN^S DISEASE
     Route: 058
     Dates: start: 20120531
  2. IMURAN [Concomitant]
     Indication: CROHN^S DISEASE
     Route: 048
  3. INDERAL [Concomitant]
     Indication: PROPHYLAXIS
     Route: 048
  4. INDERAL [Concomitant]
     Indication: MIGRAINE
  5. CELEXA [Concomitant]
     Indication: SICK RELATIVE
     Route: 048
  6. WELLBUTRIN XR [Concomitant]
     Indication: SICK RELATIVE
     Route: 048
  7. MULTIVITAMIN [Concomitant]
     Indication: PRODUCT USED FOR UNKNOWN INDICATION
  8. VITAMIN D [Concomitant]
     Indication: VITAMIN SUPPLEMENTATION
  9. OCCUVITE [Concomitant]
     Indication: EYE DISORDER

REACTIONS (3)
  - Injection site pain [Not Recovered/Not Resolved]
  - Atypical pneumonia [Unknown]
  - Injection site pain [Recovered/Resolved]
